FAERS Safety Report 19277766 (Version 1)
Quarter: 2021Q2

REPORT INFORMATION
  Report Type: Report from Study
  Country: FR (occurrence: FR)
  Receive Date: 20210520
  Receipt Date: 20210520
  Transmission Date: 20210717
  Serious: Yes (Other)
  Sender: FDA-Public Use
  Company Number: NVSC2021FR102146

PATIENT
  Age: 1 Month
  Sex: Male
  Weight: 4 kg

DRUGS (2)
  1. ZOLGENSMA [Suspect]
     Active Substance: ONASEMNOGENE ABEPARVOVEC-XIOI
     Indication: SPINAL MUSCULAR ATROPHY
     Dosage: UNK (4,4 X 10^14)
     Route: 042
     Dates: start: 20210409
  2. PREDNISOLONE. [Concomitant]
     Active Substance: PREDNISOLONE
     Indication: PRODUCT USED FOR UNKNOWN INDICATION
     Dosage: 2 MG/KG (8 MG / PRISE)
     Route: 048
     Dates: start: 20210408

REACTIONS (6)
  - Aspartate aminotransferase increased [Unknown]
  - Troponin T increased [Unknown]
  - Haemoglobin decreased [Unknown]
  - Vomiting [Recovered/Resolved]
  - Troponin I increased [Unknown]
  - Vomiting [Recovered/Resolved]

NARRATIVE: CASE EVENT DATE: 20210409
